FAERS Safety Report 8402158-6 (Version None)
Quarter: 2012Q2

REPORT INFORMATION
  Report Type: 
  Country: None (occurrence: None)
  Receive Date: 20120525
  Receipt Date: 20120515
  Transmission Date: 20120825
  Serious: Yes (Hospitalization)
  Sender: FDA-Public Use
  Company Number: 2012SP025816

PATIENT
  Age: 50 Year
  Sex: Male

DRUGS (3)
  1. VICTRELIS [Suspect]
     Indication: HEPATITIS C
  2. VIRAFERONPEG [Suspect]
     Indication: HEPATITIS C
  3. REBETOL [Suspect]
     Indication: HEPATITIS C

REACTIONS (2)
  - COMA [None]
  - CEREBROVASCULAR ACCIDENT [None]
